FAERS Safety Report 9935287 (Version 2)
Quarter: 2014Q2

REPORT INFORMATION
  Report Type: Spontaneous
  Country: RO (occurrence: RO)
  Receive Date: 20140228
  Receipt Date: 20140408
  Transmission Date: 20141212
  Serious: Yes (Death, Hospitalization)
  Sender: FDA-Public Use
  Company Number: RO-ABBVIE-14P-135-1206977-00

PATIENT
  Age: 62 Year
  Sex: Female

DRUGS (1)
  1. HUMIRA [Suspect]
     Indication: PSORIATIC ARTHROPATHY
     Dosage: 1 UNIT AT 2 WEEKS
     Route: 058
     Dates: start: 2009, end: 201312

REACTIONS (2)
  - Multi-organ failure [Fatal]
  - Pseudomonal sepsis [Fatal]
